FAERS Safety Report 7241215-7 (Version None)
Quarter: 2011Q1

REPORT INFORMATION
  Report Type: 
  Country: None (occurrence: None)
  Receive Date: 20110124
  Receipt Date: 20110114
  Transmission Date: 20110831
  Serious: Yes (Death, Hospitalization)
  Sender: FDA-Public Use
  Company Number: A0716466A

PATIENT
  Age: 74 Year
  Sex: Male
  Weight: 95.5 kg

DRUGS (8)
  1. METAMUCIL-2 [Concomitant]
  2. LIPITOR [Concomitant]
  3. INSULIN [Concomitant]
     Dates: end: 20070601
  4. MULTI-VITAMIN [Concomitant]
  5. ATENOLOL [Concomitant]
  6. AVANDIA [Suspect]
     Dosage: 4MG PER DAY
     Route: 048
     Dates: start: 20000101, end: 20070601
  7. ASPIRIN [Concomitant]
  8. LASIX [Concomitant]

REACTIONS (1)
  - MYOCARDIAL INFARCTION [None]
